FAERS Safety Report 5028197-3 (Version None)
Quarter: 2006Q2

REPORT INFORMATION
  Report Type: 
  Country: None (occurrence: None)
  Receive Date: 20060613
  Receipt Date: 20060530
  Transmission Date: 20061013
  Serious: Yes (Hospitalization)
  Sender: FDA-Public Use
  Company Number: 225579

PATIENT
  Age: 23 Year
  Sex: Male
  Weight: 37.4 kg

DRUGS (3)
  1. AVASTIN [Suspect]
     Indication: ADENOCARCINOMA
     Dosage: 400 MG, SINGLE, INTRAVENOUS
     Route: 042
     Dates: start: 20060523, end: 20060523
  2. OXALIPLATIN (OXALIPLATIN) [Suspect]
     Indication: ADENOCARCINOMA
     Dosage: 200 MG, SINGLE
     Dates: start: 20060523, end: 20060523
  3. FLUOROURACIL [Concomitant]

REACTIONS (4)
  - HAEMATURIA [None]
  - HAEMOLYTIC ANAEMIA [None]
  - HYPERBILIRUBINAEMIA [None]
  - WHITE BLOOD CELL COUNT INCREASED [None]
